FAERS Safety Report 10062411 (Version 1)
Quarter: 2014Q2

REPORT INFORMATION
  Report Type: Spontaneous
  Country: US (occurrence: None)
  Receive Date: 20140403
  Receipt Date: 20140403
  Transmission Date: 20141212
  Serious: Yes (Death, Other)
  Sender: FDA-Public Use
  Company Number: CC14-0429

PATIENT
  Age: 86 Year
  Sex: Female

DRUGS (3)
  1. IMIQUIMOD CREAM 5% (TOLMAR INC) [Suspect]
     Indication: LIP NEOPLASM
     Dosage: UNKNOWN
  2. IMIQUIMOD CREAM 5% (TOLMAR INC) [Suspect]
     Indication: TONGUE NEOPLASM
     Dosage: UNKNOWN
  3. CETUXIMAB [Concomitant]

REACTIONS (4)
  - Dermatitis acneiform [None]
  - Dry skin [None]
  - Skin exfoliation [None]
  - Pruritus [None]
